FAERS Safety Report 9133146 (Version 2)
Quarter: 2013Q1

REPORT INFORMATION
  Report Type: Spontaneous
  Country: SE (occurrence: SE)
  Receive Date: 20130301
  Receipt Date: 20130321
  Transmission Date: 20140127
  Serious: Yes (Other)
  Sender: FDA-Public Use
  Company Number: SE-ABBOTT-13P-150-1055245-00

PATIENT
  Age: 63 Year
  Sex: Female

DRUGS (2)
  1. HUMIRA [Suspect]
     Indication: PRODUCT USED FOR UNKNOWN INDICATION
     Dates: start: 20130214, end: 20130214
  2. LORATADIN [Concomitant]

REACTIONS (7)
  - Pyrexia [Not Recovered/Not Resolved]
  - Hypersensitivity [Not Recovered/Not Resolved]
  - Chills [Not Recovered/Not Resolved]
  - Rash pruritic [Not Recovered/Not Resolved]
  - Application site reaction [Not Recovered/Not Resolved]
  - Pruritus [Not Recovered/Not Resolved]
  - Rash papular [Not Recovered/Not Resolved]
